FAERS Safety Report 4430284-5 (Version None)
Quarter: 2004Q3

REPORT INFORMATION
  Report Type: 
  Country: None (occurrence: None)
  Receive Date: 20040817
  Receipt Date: 20040804
  Transmission Date: 20050211
  Serious: Yes (Other)
  Sender: FDA-Public Use
  Company Number: 2004227253GB

PATIENT
  Age: 42 Year
  Sex: Female
  Weight: 22.6799 kg

DRUGS (3)
  1. DEPO-PROVERA [Suspect]
     Indication: CONTRACEPTION
     Dosage: SEE IMAGE
     Route: 030
     Dates: start: 20031114, end: 20031114
  2. DEPO-PROVERA [Suspect]
     Indication: CONTRACEPTION
     Dosage: SEE IMAGE
     Route: 030
     Dates: start: 20040707, end: 20040707
  3. BECLOMETHASONE DIPROPIONATE [Concomitant]

REACTIONS (1)
  - ANAPHYLACTIC REACTION [None]
